FAERS Safety Report 6283735-8 (Version None)
Quarter: 2009Q3

REPORT INFORMATION
  Report Type: 
  Country: None (occurrence: None)
  Receive Date: 20090724
  Receipt Date: 20090717
  Transmission Date: 20100115
  Serious: Yes (Hospitalization)
  Sender: FDA-Public Use
  Company Number: US-MERCK-0907USA02790

PATIENT
  Age: 63 Year
  Sex: Female

DRUGS (2)
  1. JANUVIA [Suspect]
     Indication: TYPE 2 DIABETES MELLITUS
     Route: 048
     Dates: start: 20080701, end: 20090701
  2. METFORMIN [Concomitant]
     Route: 065

REACTIONS (2)
  - BLOOD GLUCOSE INCREASED [None]
  - UTERINE CANCER [None]
